FAERS Safety Report 21161504 (Version 1)
Quarter: 2022Q3

REPORT INFORMATION
  Report Type: Spontaneous
  Country: US (occurrence: US)
  Receive Date: 20220802
  Receipt Date: 20220802
  Transmission Date: 20221026
  Serious: Yes (Other)
  Sender: FDA-Public Use
  Company Number: US-ELI_LILLY_AND_COMPANY-US202207011623

PATIENT
  Sex: Female

DRUGS (1)
  1. HUMALOG [Suspect]
     Active Substance: INSULIN LISPRO
     Indication: Product used for unknown indication
     Dosage: UNK UNK, UNKNOWN
     Route: 065
     Dates: start: 2019

REACTIONS (13)
  - Cardiac failure [Unknown]
  - Pulmonary oedema [Unknown]
  - Blood glucose increased [Unknown]
  - Urinary incontinence [Unknown]
  - Gait disturbance [Unknown]
  - Anal incontinence [Unknown]
  - Dysphonia [Unknown]
  - Nervous system disorder [Unknown]
  - Bronchitis chronic [Unknown]
  - Pain [Unknown]
  - Peripheral swelling [Unknown]
  - Oedema peripheral [Unknown]
  - Extra dose administered [Unknown]
